FAERS Safety Report 8620087 (Version 2)
Quarter: 2014Q4

REPORT INFORMATION
  Report Type: Spontaneous
  Country: US (occurrence: US)
  Receive Date: 20120618
  Receipt Date: 20141023
  Transmission Date: 20150529
  Serious: Yes (Hospitalization, Other)
  Sender: FDA-Public Use
  Company Number: US-GLAXOSMITHKLINE-A0966835A

PATIENT
  Sex: Male

DRUGS (2)
  1. AVANDIA [Suspect]
     Active Substance: ROSIGLITAZONE MALEATE
     Indication: DIABETES MELLITUS
     Dosage: 8 MG, UNK
     Route: 048
     Dates: start: 20020525, end: 20080228
  2. ROSIGLITAZONE MALEATE. [Suspect]
     Active Substance: ROSIGLITAZONE MALEATE
     Dosage: G
     Route: 048
     Dates: start: 20050609, end: 20071127

REACTIONS (6)
  - Coronary artery occlusion [Unknown]
  - Pulmonary oedema [Unknown]
  - Ischaemic cardiomyopathy [Unknown]
  - Myocardial infarction [Not Recovered/Not Resolved]
  - Pleural effusion [Unknown]
  - Cardiac failure congestive [Unknown]

NARRATIVE: CASE EVENT DATE: 2008
